FAERS Safety Report 23307488 (Version 1)
Quarter: 2023Q4

REPORT INFORMATION
  Report Type: Spontaneous
  Country: GB (occurrence: GB)
  Receive Date: 20231218
  Receipt Date: 20231218
  Transmission Date: 20240110
  Serious: Yes (Disabling)
  Sender: FDA-Public Use
  Company Number: None

PATIENT
  Age: 29 Year
  Sex: Female
  Weight: 82 kg

DRUGS (5)
  1. MIRTAZAPINE [Suspect]
     Active Substance: MIRTAZAPINE
     Indication: Product used for unknown indication
     Dosage: TAKE HALF A TABLET FOR 2 WEEKS THEN ONE TABLET ...
     Route: 065
     Dates: start: 20231122
  2. COCODAMOL [Concomitant]
     Active Substance: ACETAMINOPHEN\CODEINE PHOSPHATE
     Dosage: 2 DOSAGE FORM, QID
     Route: 065
     Dates: start: 20230927, end: 20231011
  3. SUMATRIPTAN [Concomitant]
     Active Substance: SUMATRIPTAN
     Indication: Migraine
     Dosage: AT START OF MIGRAINE, CAN REPEAT ONCE ...
     Route: 065
     Dates: start: 20230629
  4. VENLAFAXINE [Concomitant]
     Active Substance: VENLAFAXINE HYDROCHLORIDE
     Dosage: ONE PER DAY AS PER PLAN(TOTAL 75MG+37.5MG FOR 2 WEEKS THEN 75MG FOR 2 WEEKS, THEN 37.5MG FOR 2 WEEKS
     Route: 065
     Dates: start: 20231130
  5. VENLAFAXINE HYDROCHLORIDE [Concomitant]
     Active Substance: VENLAFAXINE HYDROCHLORIDE
     Dosage: (TOTAL 37.5MG +150MG FOR 2 WEEKS...
     Route: 065
     Dates: start: 20220517

REACTIONS (2)
  - Eye movement disorder [Unknown]
  - Somnolence [Unknown]
